FAERS Safety Report 19942716 (Version 1)
Quarter: 2021Q4

REPORT INFORMATION
  Report Type: Report from Study
  Country: MX (occurrence: MX)
  Receive Date: 20211012
  Receipt Date: 20211012
  Transmission Date: 20220303
  Serious: Yes (Disabling, Other)
  Sender: FDA-Public Use
  Company Number: MX-NOVARTISPH-PHHY2018MX043401

PATIENT
  Sex: Female
  Weight: 35 kg

DRUGS (6)
  1. TRILEPTAL [Suspect]
     Active Substance: OXCARBAZEPINE
     Indication: Seizure
     Dosage: 2.5 DF, QD (08 YEARS AGO)
     Route: 048
  2. TRILEPTAL [Suspect]
     Active Substance: OXCARBAZEPINE
     Dosage: 1 DF, BID
     Route: 048
  3. TRILEPTAL [Suspect]
     Active Substance: OXCARBAZEPINE
     Dosage: 0.5 DF (IN THE MORNING AND AFTERNOON)
     Route: 065
  4. KRIADEX [Concomitant]
     Indication: Sleep disorder
     Dosage: 0.5 DF, QD (2 YEARS AGO )
     Route: 048
  5. EUTHYROX [Concomitant]
     Active Substance: LEVOTHYROXINE SODIUM
     Indication: Hypothyroidism
     Dosage: 1 DF, QD (2 YEARS AGO )
     Route: 048
  6. FOLIC ACID [Concomitant]
     Active Substance: FOLIC ACID
     Indication: Intellectual disability
     Dosage: UNK
     Route: 065

REACTIONS (17)
  - Meningioma [Recovering/Resolving]
  - Mobility decreased [Recovering/Resolving]
  - Limb discomfort [Recovering/Resolving]
  - Weight decreased [Unknown]
  - Limb asymmetry [Recovering/Resolving]
  - Skin fissures [Recovering/Resolving]
  - Herpes zoster [Recovering/Resolving]
  - Depression [Recovered/Resolved]
  - Ear pain [Unknown]
  - Facial pain [Unknown]
  - Allergy to chemicals [Unknown]
  - Hypersensitivity [Unknown]
  - Urticaria [Unknown]
  - Somnolence [Recovered/Resolved]
  - Peripheral swelling [Not Recovered/Not Resolved]
  - Hypertension [Unknown]
  - Incorrect dose administered [Unknown]
